FAERS Safety Report 15066942 (Version 1)
Quarter: 2018Q2

REPORT INFORMATION
  Report Type: Spontaneous
  Country: US (occurrence: US)
  Receive Date: 20180626
  Receipt Date: 20180626
  Transmission Date: 20180711
  Serious: No
  Sender: FDA-Public Use
  Company Number: US-MYLANLABS-2018M1042842

PATIENT
  Sex: Male
  Weight: 72 kg

DRUGS (1)
  1. FENTANYL TRANSDERMAL SYSTEM [Suspect]
     Active Substance: FENTANYL
     Indication: BACK PAIN
     Dosage: UNK
     Route: 062

REACTIONS (3)
  - Product adhesion issue [Unknown]
  - No adverse event [Unknown]
  - Wrong technique in product usage process [Recovered/Resolved]
